FAERS Safety Report 17569089 (Version 1)
Quarter: 2020Q1

REPORT INFORMATION
  Report Type: Report from Study
  Country: None (occurrence: CO)
  Receive Date: 20200322
  Receipt Date: 20200322
  Transmission Date: 20200409
  Serious: Yes (Hospitalization)
  Sender: FDA-Public Use
  Company Number: CO-ABBVIE-20K-036-3331968-00

PATIENT
  Age: 34 Year
  Sex: Male

DRUGS (1)
  1. ZEMPLAR [Suspect]
     Active Substance: PARICALCITOL
     Indication: HYPERPARATHYROIDISM SECONDARY
     Dosage: POSTDIALYSIS
     Route: 042
     Dates: start: 20191120, end: 20200219

REACTIONS (6)
  - Haematemesis [Recovering/Resolving]
  - Dialysis related complication [Unknown]
  - Procedural hypotension [Recovering/Resolving]
  - Fall [Recovering/Resolving]
  - Diabetic neuropathy [Recovering/Resolving]
  - Back injury [Unknown]

NARRATIVE: CASE EVENT DATE: 202003
